FAERS Safety Report 6457917-6 (Version None)
Quarter: 2009Q4

REPORT INFORMATION
  Report Type: 
  Country: None (occurrence: None)
  Receive Date: 20091125
  Receipt Date: 20091028
  Transmission Date: 20100525
  Serious: Yes (Life-Threatening, Hospitalization)
  Sender: FDA-Public Use
  Company Number: CA-SANOFI-AVENTIS-A01200910612

PATIENT
  Age: 69 Year
  Sex: Male

DRUGS (13)
  1. ALFUZOSIN HYDROCHLORIDE [Suspect]
     Indication: BENIGN PROSTATIC HYPERPLASIA
     Dosage: UNIT DOSE: 10 MG
     Route: 048
     Dates: start: 20060822, end: 20090921
  2. IMDUR [Concomitant]
     Indication: DRUG USE FOR UNKNOWN INDICATION
     Route: 065
     Dates: end: 20090701
  3. IMDUR [Concomitant]
     Route: 065
     Dates: start: 20090801, end: 20090901
  4. NITROLINGUAL [Concomitant]
     Indication: DRUG USE FOR UNKNOWN INDICATION
     Route: 065
  5. RAMIPRIL [Concomitant]
     Indication: DRUG USE FOR UNKNOWN INDICATION
     Route: 065
     Dates: end: 20090501
  6. RAMIPRIL [Concomitant]
     Route: 065
     Dates: start: 20090601, end: 20090701
  7. RAMIPRIL [Concomitant]
     Route: 065
     Dates: start: 20090801
  8. AMLODIPINE [Concomitant]
     Indication: DRUG USE FOR UNKNOWN INDICATION
     Route: 065
     Dates: end: 20090501
  9. AMLODIPINE [Concomitant]
     Route: 065
     Dates: start: 20090601, end: 20090921
  10. ACETYLSALICYLIC ACID ENTERIC COATED [Concomitant]
     Indication: DRUG USE FOR UNKNOWN INDICATION
     Route: 065
  11. LIPITOR [Concomitant]
     Indication: DRUG USE FOR UNKNOWN INDICATION
     Route: 065
  12. ATENOLOL [Concomitant]
     Indication: DRUG USE FOR UNKNOWN INDICATION
     Route: 065
     Dates: end: 20090921
  13. ALPRAZOLAM [Concomitant]
     Indication: DRUG USE FOR UNKNOWN INDICATION
     Dosage: UNIT DOSE: .5 MG
     Route: 065
     Dates: end: 20090921

REACTIONS (1)
  - MYOCARDIAL INFARCTION [None]
